FAERS Safety Report 23476960 (Version 2)
Quarter: 2024Q1

REPORT INFORMATION
  Report Type: Spontaneous
  Country: GB (occurrence: GB)
  Receive Date: 20240204
  Receipt Date: 20240322
  Transmission Date: 20240410
  Serious: Yes (Death, Life-Threatening, Hospitalization)
  Sender: FDA-Public Use
  Company Number: None

PATIENT
  Age: 57 Year
  Sex: Male
  Weight: 79 kg

DRUGS (1)
  1. REMICADE [Suspect]
     Active Substance: INFLIXIMAB
     Indication: Colitis ulcerative
     Dosage: 5MG/KG INFUSION LAST TAKEN IN DECEMBER 2023; ;
     Route: 041
     Dates: end: 202312

REACTIONS (9)
  - Interstitial lung disease [Fatal]
  - Pyrexia [Unknown]
  - Chills [Unknown]
  - Dyspnoea [Unknown]
  - Diarrhoea [Unknown]
  - Respiratory failure [Unknown]
  - Multiple organ dysfunction syndrome [Unknown]
  - Blood test abnormal [Unknown]
  - Poor peripheral circulation [Unknown]

NARRATIVE: CASE EVENT DATE: 20240122
